FAERS Safety Report 11847632 (Version 1)
Quarter: 2015Q4

REPORT INFORMATION
  Report Type: Spontaneous
  Country: US (occurrence: US)
  Receive Date: 20151217
  Receipt Date: 20151217
  Transmission Date: 20160305
  Serious: No
  Sender: FDA-Public Use
  Company Number: US-PURDUE-USA-2015-0125644

PATIENT
  Sex: Female

DRUGS (2)
  1. HYDROMORPHONE TABLET (RHODES) [Suspect]
     Active Substance: HYDROMORPHONE
     Indication: HEADACHE
     Dosage: 1.5-2 TABLET, DAILY
     Route: 048
  2. HYDROMORPHONE TABLET (RHODES) [Suspect]
     Active Substance: HYDROMORPHONE
     Indication: PAIN

REACTIONS (5)
  - Cardiac flutter [Unknown]
  - Drug effect decreased [Unknown]
  - Palpitations [Unknown]
  - Emphysema [Unknown]
  - Feeling abnormal [Unknown]
